FAERS Safety Report 7300669-8 (Version None)
Quarter: 2011Q1

REPORT INFORMATION
  Report Type: 
  Country: None (occurrence: None)
  Receive Date: 20110207
  Receipt Date: 20110131
  Transmission Date: 20110831
  Serious: Yes (Hospitalization)
  Sender: FDA-Public Use
  Company Number: LEO-2011-00127

PATIENT
  Age: 75 Year
  Sex: Male

DRUGS (2)
  1. INNOHEP [Suspect]
     Indication: THROMBOSIS PROPHYLAXIS
     Dosage: (1 IN 1 D),SUBCUTANEOUS
     Route: 058
     Dates: start: 20101119, end: 20101207
  2. INNOHEP [Suspect]
     Indication: KNEE ARTHROPLASTY
     Dosage: (1 IN 1 D),SUBCUTANEOUS
     Route: 058
     Dates: start: 20101119, end: 20101207

REACTIONS (2)
  - DEEP VEIN THROMBOSIS [None]
  - HEPARIN-INDUCED THROMBOCYTOPENIA [None]
